FAERS Safety Report 22394546 (Version 1)
Quarter: 2023Q2

REPORT INFORMATION
  Report Type: Spontaneous
  Country: US (occurrence: None)
  Receive Date: 20230531
  Receipt Date: 20230531
  Transmission Date: 20230722
  Serious: No
  Sender: FDA-Public Use
  Company Number: None

PATIENT
  Age: 59 Year
  Sex: Female

DRUGS (2)
  1. KEYTRUDA [Suspect]
     Active Substance: PEMBROLIZUMAB
     Route: 042
     Dates: start: 202304
  2. LENVIMA [Concomitant]

REACTIONS (2)
  - Endometrial cancer [None]
  - Malignant neoplasm progression [None]

NARRATIVE: CASE EVENT DATE: 20230419
